FAERS Safety Report 9336188 (Version 2)
Quarter: 2013Q3

REPORT INFORMATION
  Report Type: Spontaneous
  Country: US (occurrence: US)
  Receive Date: 20130607
  Receipt Date: 20130730
  Transmission Date: 20140515
  Serious: No
  Sender: FDA-Public Use
  Company Number: US-BIOGENIDEC-2013BI050887

PATIENT
  Age: 85 Year
  Sex: Female

DRUGS (1)
  1. TYSABRI [Suspect]
     Indication: CROHN^S DISEASE
     Route: 042
     Dates: start: 20130207

REACTIONS (5)
  - Rash papular [Not Recovered/Not Resolved]
  - Skin lesion [Unknown]
  - Amnesia [Unknown]
  - Headache [Unknown]
  - Herpes zoster [Unknown]
